FAERS Safety Report 8323389-X (Version None)
Quarter: 2012Q2

REPORT INFORMATION
  Report Type: 
  Country: None (occurrence: None)
  Receive Date: 20120430
  Receipt Date: 20120417
  Transmission Date: 20120825
  Serious: Yes (Hospitalization)
  Sender: FDA-Public Use
  Company Number: IE-ELI_LILLY_AND_COMPANY-IE201204006004

PATIENT
  Age: 55 Year
  Sex: Female

DRUGS (3)
  1. CYMBALTA [Suspect]
     Dosage: 180 MG, QD
  2. CYMBALTA [Suspect]
     Dosage: 60 MG, QD
  3. CYMBALTA [Suspect]
     Indication: DEPRESSION
     Dosage: 30 MG, QD

REACTIONS (2)
  - ACCIDENTAL OVERDOSE [None]
  - HOSPITALISATION [None]
